FAERS Safety Report 17412023 (Version 1)
Quarter: 2020Q1

REPORT INFORMATION
  Report Type: Spontaneous
  Country: US (occurrence: US)
  Receive Date: 20200129
  Receipt Date: 20200129
  Transmission Date: 20200409
  Serious: No
  Sender: FDA-Public Use
  Company Number: None

PATIENT
  Age: 86 Year
  Sex: Female

DRUGS (2)
  1. ANAGRELIDE HCL 1MG [Suspect]
     Active Substance: ANAGRELIDE HYDROCHLORIDE
     Indication: LUNG ABSCESS
     Route: 048
     Dates: start: 20180109
  2. ANAGRELIDE HCL 1MG [Suspect]
     Active Substance: ANAGRELIDE HYDROCHLORIDE
     Indication: PNEUMONIA
     Route: 048
     Dates: start: 20180109

REACTIONS (3)
  - Product use issue [None]
  - Musculoskeletal disorder [None]
  - Cerebrovascular accident [None]

NARRATIVE: CASE EVENT DATE: 20200128
